FAERS Safety Report 20167725 (Version 1)
Quarter: 2021Q4

REPORT INFORMATION
  Report Type: Spontaneous
  Country: JP (occurrence: JP)
  Receive Date: 20211210
  Receipt Date: 20211210
  Transmission Date: 20220303
  Serious: Yes (Hospitalization)
  Sender: FDA-Public Use
  Company Number: None

PATIENT
  Age: 79 Year
  Sex: Male
  Weight: 56.2 kg

DRUGS (7)
  1. PLAVIX [Suspect]
     Active Substance: CLOPIDOGREL BISULFATE
     Indication: Product used for unknown indication
     Dosage: 75 MG, QD
     Route: 048
     Dates: end: 20190530
  2. ROSUVASTATIN CALCIUM [Suspect]
     Active Substance: ROSUVASTATIN CALCIUM
     Indication: Product used for unknown indication
     Dosage: 5 MG, QD
     Route: 048
     Dates: end: 20190424
  3. ASPIRIN\LANSOPRAZOLE [Concomitant]
     Active Substance: ASPIRIN\LANSOPRAZOLE
     Indication: Product used for unknown indication
     Route: 048
  4. CANDESARTAN CILEXETIL [Concomitant]
     Active Substance: CANDESARTAN CILEXETIL
     Indication: Product used for unknown indication
     Route: 048
  5. CARVEDILOL [Concomitant]
     Active Substance: CARVEDILOL
     Indication: Product used for unknown indication
     Route: 048
  6. AMIODARONE HYDROCHLORIDE [Concomitant]
     Active Substance: AMIODARONE HYDROCHLORIDE
     Indication: Product used for unknown indication
     Route: 048
  7. AZOSEMIDE [Concomitant]
     Active Substance: AZOSEMIDE
     Indication: Product used for unknown indication
     Route: 048

REACTIONS (1)
  - Blood creatine phosphokinase increased [Recovered/Resolved]

NARRATIVE: CASE EVENT DATE: 20190415
